FAERS Safety Report 7144872-9 (Version None)
Quarter: 2010Q4

REPORT INFORMATION
  Report Type: 
  Country: None (occurrence: None)
  Receive Date: 20101123
  Receipt Date: 20100520
  Transmission Date: 20110411
  Serious: Yes (Other)
  Sender: FDA-Public Use
  Company Number: TRP_06992_2010

PATIENT
  Age: 55 Year
  Sex: Male
  Weight: 81.6475 kg

DRUGS (4)
  1. INFERGEN [Suspect]
     Indication: HEPATITIS C
     Dosage: (15 UG QD)
     Dates: start: 20091101, end: 20100101
  2. CELEXA [Concomitant]
  3. MORPHINE [Concomitant]
  4. OXYCODONE HCL [Concomitant]

REACTIONS (7)
  - ASTHENIA [None]
  - HEPATITIS C RNA INCREASED [None]
  - PAIN [None]
  - PLATELET COUNT DECREASED [None]
  - PRODUCT QUALITY ISSUE [None]
  - THERAPEUTIC RESPONSE DECREASED [None]
  - WEIGHT DECREASED [None]
